FAERS Safety Report 6284782-2 (Version None)
Quarter: 2009Q3

REPORT INFORMATION
  Report Type: 
  Country: None (occurrence: None)
  Receive Date: 20090727
  Receipt Date: 20090720
  Transmission Date: 20100115
  Serious: Yes (Hospitalization)
  Sender: FDA-Public Use
  Company Number: PHHO2009DE08984

PATIENT
  Sex: Male

DRUGS (2)
  1. TACROLIMUS COMP-TAC+ [Suspect]
     Indication: LIVER TRANSPLANT
     Dosage: OPEN LABEL
     Route: 048
     Dates: start: 20090611
  2. RAD 666 RAD+TAB [Suspect]
     Indication: LIVER TRANSPLANT
     Dosage: OPEN LABEL
     Route: 048
     Dates: start: 20090611

REACTIONS (2)
  - ASCITES [None]
  - C-REACTIVE PROTEIN INCREASED [None]
